FAERS Safety Report 24722936 (Version 1)
Quarter: 2024Q4

REPORT INFORMATION
  Report Type: Spontaneous
  Country: DE (occurrence: DE)
  Receive Date: 20241211
  Receipt Date: 20241211
  Transmission Date: 20250115
  Serious: Yes (Other)
  Sender: DAIICHI
  Company Number: DE-DAIICHI SANKYO, INC.-DS-2024-109615-DE

PATIENT
  Age: 69 Year
  Sex: Female
  Weight: 61 kg

DRUGS (7)
  1. ENHERTU [Suspect]
     Active Substance: FAM-TRASTUZUMAB DERUXTECAN-NXKI
     Indication: Breast cancer
     Dosage: 264 MG, (REPORTED AS Q22)
     Route: 065
     Dates: start: 20230328, end: 20230328
  2. ENHERTU [Suspect]
     Active Substance: FAM-TRASTUZUMAB DERUXTECAN-NXKI
     Dosage: 264 MG, (REPORTED AS Q22)
     Route: 065
     Dates: start: 20240801, end: 20240801
  3. ANASTROZOLE [Concomitant]
     Active Substance: ANASTROZOLE
     Indication: Breast cancer
     Dosage: 1 MG, QD (1 MG 0-0-1)
     Route: 065
     Dates: start: 20230328
  4. DULOXETINE [Concomitant]
     Active Substance: DULOXETINE
     Indication: Nausea
     Dosage: 60 MG, QD (60 MG 1-0-0)
     Route: 065
     Dates: start: 20230811, end: 20240912
  5. DULOXETINE [Concomitant]
     Active Substance: DULOXETINE
     Indication: Neuropathy peripheral
  6. LOPRAMIDE [Concomitant]
     Indication: Diarrhoea
     Dosage: 2 MG, AS NEEDED
     Route: 065
  7. MIRTAZAPINE [Concomitant]
     Active Substance: MIRTAZAPINE
     Indication: Insomnia
     Dosage: 15 MG, QD (15 MG 0-0-1)
     Route: 065
     Dates: start: 20241107

REACTIONS (1)
  - Pulmonary fibrosis [Recovered/Resolved]

NARRATIVE: CASE EVENT DATE: 20240704
